FAERS Safety Report 9145411 (Version 1)
Quarter: 2013Q1

REPORT INFORMATION
  Report Type: Spontaneous
  Country: US (occurrence: None)
  Receive Date: 20130214
  Receipt Date: 20130214
  Transmission Date: 20140127
  Serious: Yes (Death)
  Sender: FDA-Public Use
  Company Number: 2013020046

PATIENT
  Age: 23 Year
  Sex: Male

DRUGS (4)
  1. CARISOPRODOL (CARISOPRODOL) [Suspect]
     Indication: COMPLETED SUICIDE
     Route: 048
  2. HYDROCODONE W/ACETAMINOPHEN [Suspect]
     Indication: COMPLETED SUICIDE
     Route: 048
  3. ALPRAZOLAM (ALPRAZOLAM) [Suspect]
     Indication: COMPLETED SUICIDE
     Route: 048
  4. AMPHETAMINE [Suspect]
     Indication: COMPLETED SUICIDE
     Route: 048

REACTIONS (3)
  - Completed suicide [None]
  - Cardiac arrest [None]
  - Respiratory arrest [None]
